FAERS Safety Report 7391216-3 (Version None)
Quarter: 2011Q2

REPORT INFORMATION
  Report Type: 
  Country: None (occurrence: None)
  Receive Date: 20110404
  Receipt Date: 20100602
  Transmission Date: 20111010
  Serious: No
  Sender: FDA-Public Use
  Company Number: US-PFIZER INC-2010069558

PATIENT
  Sex: Male
  Weight: 92.971 kg

DRUGS (9)
  1. WARFARIN [Concomitant]
     Dosage: 2 MG, UNK
  2. NOVOLOG [Concomitant]
     Indication: DIABETES MELLITUS
     Dosage: 40 IU, 2X/DAY
     Dates: start: 20000101
  3. NEBIVOLOL [Concomitant]
     Dosage: UNK
     Route: 048
  4. GENOTROPIN [Suspect]
     Indication: BLOOD GROWTH HORMONE
     Dosage: UNK
     Route: 058
     Dates: start: 20100513
  5. LEVOXYL [Concomitant]
     Dosage: UNK
     Route: 048
  6. LESCOL [Concomitant]
     Dosage: UNK
  7. ALLOPURINOL [Concomitant]
     Indication: GOUT
     Dosage: UNK
     Dates: start: 19950101
  8. TRICOR [Concomitant]
     Dosage: UNK
     Route: 048
  9. CARVEDILOL [Concomitant]
     Dosage: UNK

REACTIONS (1)
  - INJECTION SITE HAEMATOMA [None]
